FAERS Safety Report 9033703 (Version 2)
Quarter: 2013Q3

REPORT INFORMATION
  Report Type: Spontaneous
  Country: CA (occurrence: CA)
  Receive Date: 20130128
  Receipt Date: 20130821
  Transmission Date: 20140515
  Serious: Yes (Other)
  Sender: FDA-Public Use
  Company Number: CA-AMGEN-CANSP2012076589

PATIENT
  Age: 70 Year
  Sex: Female

DRUGS (3)
  1. ENBREL [Suspect]
     Indication: RHEUMATOID ARTHRITIS
     Dosage: 50 MG, QWK
     Route: 058
     Dates: start: 20110610, end: 201207
  2. MINOCYCLINE [Concomitant]
     Indication: RHEUMATOID ARTHRITIS
     Dosage: 100 MG, Q1Z H
     Route: 048
     Dates: start: 2010, end: 201212
  3. PREDNISONE [Concomitant]
     Indication: RHEUMATOID ARTHRITIS
     Dosage: 5 MG, DAILY
     Route: 048
     Dates: start: 2007

REACTIONS (1)
  - Peripheral sensory neuropathy [Recovered/Resolved]
